FAERS Safety Report 10244444 (Version 1)
Quarter: 2014Q2

REPORT INFORMATION
  Report Type: Spontaneous
  Country: US (occurrence: None)
  Receive Date: 20140616
  Receipt Date: 20140616
  Transmission Date: 20141212
  Serious: Yes (Hospitalization)
  Sender: FDA-Public Use
  Company Number: None

PATIENT
  Age: 45 Year
  Sex: Female
  Weight: 70.5 kg

DRUGS (1)
  1. IRON SUCROSE [Suspect]
     Indication: ANAEMIA
     Dosage: 500  ONCE  IV
     Route: 042
     Dates: start: 20140519, end: 20140519

REACTIONS (15)
  - Pruritus [None]
  - Skin burning sensation [None]
  - Urticaria [None]
  - Abdominal pain upper [None]
  - Back pain [None]
  - Nausea [None]
  - Hyperhidrosis [None]
  - Anxiety [None]
  - Dizziness [None]
  - Infusion related reaction [None]
  - Myalgia [None]
  - Anaphylactic reaction [None]
  - Rash [None]
  - Urticaria [None]
  - Vomiting [None]
